FAERS Safety Report 6202029-X (Version None)
Quarter: 2009Q2

REPORT INFORMATION
  Report Type: 
  Country: None (occurrence: None)
  Receive Date: 20090526
  Receipt Date: 20090508
  Transmission Date: 20091009
  Serious: Yes (Death, Hospitalization)
  Sender: FDA-Public Use
  Company Number: A0785862A

PATIENT
  Age: 82 Year
  Sex: Female
  Weight: 54.5 kg

DRUGS (4)
  1. AVANDIA [Suspect]
     Dosage: 4MG PER DAY
     Route: 048
     Dates: start: 20041115, end: 20051222
  2. PROTONIX [Concomitant]
  3. VERAPAMIL [Concomitant]
  4. FOSAMAX [Concomitant]

REACTIONS (2)
  - CARDIAC DEATH [None]
  - MYOCARDIAL INFARCTION [None]
